FAERS Safety Report 20732218 (Version 2)
Quarter: 2022Q2

REPORT INFORMATION
  Report Type: Spontaneous
  Country: US (occurrence: US)
  Receive Date: 20220420
  Receipt Date: 20220512
  Transmission Date: 20220721
  Serious: No
  Sender: FDA-Public Use
  Company Number: US-JNJFOC-20220418149

PATIENT
  Age: 71 Year
  Sex: Female
  Weight: 70.370 kg

DRUGS (1)
  1. TREMFYA [Suspect]
     Active Substance: GUSELKUMAB
     Indication: Psoriasis
     Route: 058
     Dates: start: 20220310

REACTIONS (5)
  - Injection site pain [Unknown]
  - Injection site mass [Unknown]
  - Erythema [Unknown]
  - Feeling hot [Unknown]
  - Thermal burn [Unknown]

NARRATIVE: CASE EVENT DATE: 20220407
